FAERS Safety Report 6074840-X (Version None)
Quarter: 2009Q1

REPORT INFORMATION
  Report Type: 
  Country: None (occurrence: None)
  Receive Date: 20090212
  Receipt Date: 20090204
  Transmission Date: 20090719
  Serious: Yes (Hospitalization)
  Sender: FDA-Public Use
  Company Number: PHHY2009IT03386

PATIENT
  Sex: Female

DRUGS (4)
  1. EXELON [Suspect]
     Indication: SENILE DEMENTIA
     Dosage: 4.6 MG PER DAY
     Route: 062
     Dates: start: 20081130, end: 20081230
  2. TRIATEC [Concomitant]
     Dosage: 2.5 MG, UNK
     Route: 048
  3. CARDIOSPORIN [Concomitant]
     Dosage: 100 MG PER DAY
     Route: 048
  4. DEPAKOTE [Concomitant]
     Dosage: 300 MG, UNK
     Route: 048

REACTIONS (1)
  - HEPATITIS CHOLESTATIC [None]
